FAERS Safety Report 4399258-7 (Version None)
Quarter: 2004Q3

REPORT INFORMATION
  Report Type: 
  Country: None (occurrence: None)
  Receive Date: 20040712
  Receipt Date: 20040622
  Transmission Date: 20050211
  Serious: Yes (Hospitalization, Other)
  Sender: FDA-Public Use
  Company Number: US_000541596

PATIENT
  Age: 81 Year
  Sex: Female
  Weight: 63 kg

DRUGS (3)
  1. HUMULIN N [Suspect]
     Indication: DIABETES MELLITUS
     Dosage: 30 U DAY
  2. UNSPECIFIED BLOOD PRESSURE MEDICATION [Concomitant]
  3. DIOVAN [Concomitant]

REACTIONS (32)
  - ABSCESS LIMB [None]
  - ALCOHOLISM [None]
  - ARTERIAL BYPASS OPERATION [None]
  - CARDIAC FAILURE [None]
  - CAROTID ARTERY OCCLUSION [None]
  - CONTUSION [None]
  - CORONARY ARTERY OCCLUSION [None]
  - DIABETIC COMPLICATION [None]
  - DIABETIC FOOT [None]
  - DIABETIC NEUROPATHY [None]
  - EMPHYSEMA [None]
  - FACIAL BONES FRACTURE [None]
  - FALL [None]
  - FEELING ABNORMAL [None]
  - HYPERGLYCAEMIA [None]
  - HYPERTENSION [None]
  - HYSTERECTOMY [None]
  - INFECTION [None]
  - INJECTION SITE DISCOMFORT [None]
  - INJECTION SITE HAEMORRHAGE [None]
  - INJECTION SITE PAIN [None]
  - MYOCARDIAL INFARCTION [None]
  - PHARMACEUTICAL PRODUCT COMPLAINT [None]
  - POSTOPERATIVE THROMBOSIS [None]
  - PULSE ABSENT [None]
  - RENAL FAILURE [None]
  - RIB FRACTURE [None]
  - SMOKER [None]
  - SPEECH DISORDER [None]
  - VASCULAR INJURY [None]
  - VISUAL ACUITY REDUCED [None]
  - WEIGHT INCREASED [None]
